FAERS Safety Report 10769065 (Version 3)
Quarter: 2015Q1

REPORT INFORMATION
  Report Type: Spontaneous
  Country: US (occurrence: US)
  Receive Date: 20150206
  Receipt Date: 20150323
  Transmission Date: 20150721
  Serious: Yes (Hospitalization, Other)
  Sender: FDA-Public Use
  Company Number: US-INCYTE CORPORATION-2015IN000331

PATIENT
  Age: 77 Year
  Sex: Male

DRUGS (10)
  1. CAPECITABINE. [Suspect]
     Active Substance: CAPECITABINE
     Dosage: ONE TREATMENT ROUND
     Route: 048
  2. TYLENOL [Concomitant]
     Active Substance: ACETAMINOPHEN
  3. JAKAFI [Suspect]
     Active Substance: RUXOLITINIB
     Dosage: 10 MG, BID
     Route: 048
     Dates: start: 20150203, end: 20150219
  4. JAKAFI [Suspect]
     Active Substance: RUXOLITINIB
     Indication: MYELOFIBROSIS
     Dosage: 5 MG, BID
     Route: 048
     Dates: start: 201501, end: 201501
  5. LORAZEPAM. [Concomitant]
     Active Substance: LORAZEPAM
  6. JAKAFI [Suspect]
     Active Substance: RUXOLITINIB
     Dosage: 5 MG, BID
     Route: 048
     Dates: start: 20141224
  7. ALLOPURINOL. [Concomitant]
     Active Substance: ALLOPURINOL
  8. VALTREX [Concomitant]
     Active Substance: VALACYCLOVIR HYDROCHLORIDE
     Indication: HERPES SIMPLEX
  9. VITAMIN B [Concomitant]
     Active Substance: VITAMIN B
  10. DACOGEN [Suspect]
     Active Substance: DECITABINE
     Indication: MYELOFIBROSIS

REACTIONS (6)
  - Stomatitis [Unknown]
  - Malaise [Unknown]
  - Pulmonary haemorrhage [Recovered/Resolved]
  - Thrombocytopenia [Not Recovered/Not Resolved]
  - Dry mouth [Unknown]
  - Weight increased [Unknown]

NARRATIVE: CASE EVENT DATE: 2015
